FAERS Safety Report 22639031 (Version 1)
Quarter: 2023Q2

REPORT INFORMATION
  Report Type: Spontaneous
  Country: US (occurrence: None)
  Receive Date: 20230623
  Receipt Date: 20230623
  Transmission Date: 20230721
  Serious: Yes (Death, Life-Threatening)
  Sender: FDA-Public Use
  Company Number: None

PATIENT
  Age: 58 Year
  Sex: Male
  Weight: 103.3 kg

DRUGS (2)
  1. CAPLACIZUMAB-YHDP [Suspect]
     Active Substance: CAPLACIZUMAB-YHDP
     Indication: Thrombocytopenic purpura
     Dosage: 11 MG DAILY SUBCUTANEOUS?
     Route: 058
     Dates: start: 20230522, end: 20230605
  2. CABLIVI [Concomitant]
     Active Substance: CAPLACIZUMAB-YHDP
     Dates: start: 20230522, end: 20230605

REACTIONS (13)
  - Faeces discoloured [None]
  - Diabetic ketoacidosis [None]
  - Sepsis [None]
  - Thrombocytopenic purpura [None]
  - Urinary tract infection [None]
  - Staphylococcal infection [None]
  - Respiratory failure [None]
  - Seizure [None]
  - Gastrointestinal haemorrhage [None]
  - Atrial thrombosis [None]
  - Embolism [None]
  - Rocky mountain spotted fever [None]
  - General physical health deterioration [None]

NARRATIVE: CASE EVENT DATE: 20230604
